FAERS Safety Report 26157876 (Version 1)
Quarter: 2025Q4

REPORT INFORMATION
  Report Type: Report from Study
  Country: US (occurrence: US)
  Receive Date: 20251215
  Receipt Date: 20251215
  Transmission Date: 20260118
  Serious: Yes (Hospitalization)
  Sender: JOHNSON AND JOHNSON
  Company Number: US-JNJFOC-20251208730

PATIENT
  Age: 57 Year
  Sex: Male

DRUGS (2)
  1. SPRAVATO [Suspect]
     Active Substance: ESKETAMINE
     Indication: Depression
     Dosage: ^56 MG, 2 TOTAL DOSES^
     Route: 045
     Dates: start: 20251028, end: 20251030
  2. SPRAVATO [Suspect]
     Active Substance: ESKETAMINE
     Dosage: ^84 MG, 8 TOTAL DOSES^
     Route: 045
     Dates: start: 20251104, end: 20251202

REACTIONS (5)
  - Fear [Recovered/Resolved]
  - Irritability [Not Recovered/Not Resolved]
  - Impatience [Not Recovered/Not Resolved]
  - Morbid thoughts [Recovered/Resolved]
  - Nightmare [Recovered/Resolved]

NARRATIVE: CASE EVENT DATE: 20251028
